FAERS Safety Report 9993984 (Version 1)
Quarter: 2014Q1

REPORT INFORMATION
  Report Type: Spontaneous
  Country: US (occurrence: US)
  Receive Date: 20140310
  Receipt Date: 20140310
  Transmission Date: 20141002
  Serious: No
  Sender: FDA-Public Use
  Company Number: US-AMGEN-USASP2013055603

PATIENT
  Age: 59 Year
  Sex: Male

DRUGS (8)
  1. SENSIPAR [Suspect]
     Indication: HYPERPARATHYROIDISM SECONDARY
     Dosage: 30 MG, QD
     Route: 065
  2. RENVELA [Concomitant]
  3. CALCIUM ACETATE [Concomitant]
  4. ALLOPURINOL [Concomitant]
  5. NIFEDIPINE [Concomitant]
  6. METOPROLOL [Concomitant]
  7. FUROSEMIDE [Concomitant]
  8. DIALYVITE [Concomitant]

REACTIONS (1)
  - Pruritus [Not Recovered/Not Resolved]
